FAERS Safety Report 13657056 (Version 1)
Quarter: 2017Q2

REPORT INFORMATION
  Report Type: Spontaneous
  Country: FR (occurrence: FR)
  Receive Date: 20170615
  Receipt Date: 20170615
  Transmission Date: 20170830
  Serious: Yes (Other)
  Sender: FDA-Public Use
  Company Number: FR-BAYER-2017-110304

PATIENT
  Age: 43 Year
  Sex: Female

DRUGS (2)
  1. MIRENA [Suspect]
     Active Substance: LEVONORGESTREL
     Indication: CONTRACEPTION
     Dosage: 20 MCG/24HR, CONT
     Route: 015
     Dates: start: 201404
  2. MIRENA [Suspect]
     Active Substance: LEVONORGESTREL
     Indication: CONTRACEPTION
     Dosage: 20 MCG/24HR, CONT
     Route: 015
     Dates: start: 20090116, end: 201404

REACTIONS (11)
  - Sleep disorder [Unknown]
  - Loss of libido [Unknown]
  - Affective disorder [Unknown]
  - Depression [Unknown]
  - Arthralgia [Unknown]
  - Anxiety [Unknown]
  - Tachycardia [Unknown]
  - Weight increased [Unknown]
  - Fatigue [Unknown]
  - Emotional distress [Unknown]
  - Memory impairment [Unknown]

NARRATIVE: CASE EVENT DATE: 201409
